FAERS Safety Report 6814507-0 (Version None)
Quarter: 2010Q3

REPORT INFORMATION
  Report Type: 
  Country: None (occurrence: None)
  Receive Date: 20100702
  Receipt Date: 20100414
  Transmission Date: 20110219
  Serious: No
  Sender: FDA-Public Use
  Company Number: US-BRISTOL-MYERS SQUIBB COMPANY-15062458

PATIENT
  Age: 18 Year
  Sex: Male

DRUGS (3)
  1. ABILIFY [Suspect]
     Indication: BIPOLAR DISORDER
  2. SEROQUEL [Concomitant]
  3. LITHIUM CARBONATE [Concomitant]

REACTIONS (1)
  - AGEUSIA [None]
